FAERS Safety Report 15462297 (Version 2)
Quarter: 2018Q4

REPORT INFORMATION
  Report Type: Spontaneous
  Country: BR (occurrence: BR)
  Receive Date: 20181004
  Receipt Date: 20181024
  Transmission Date: 20190204
  Serious: Yes (Hospitalization, Other)
  Sender: FDA-Public Use
  Company Number: BR-ASTRAZENECA-2018SF25365

PATIENT
  Age: 69 Year
  Sex: Female

DRUGS (1)
  1. XIGDUO XR [Suspect]
     Active Substance: DAPAGLIFLOZIN PROPANEDIOL\METFORMIN HYDROCHLORIDE
     Dosage: 10/1000 MG
     Route: 048
     Dates: start: 2017

REACTIONS (2)
  - Skin necrosis [Recovered/Resolved]
  - Infected skin ulcer [Recovered/Resolved]

NARRATIVE: CASE EVENT DATE: 20180913
